FAERS Safety Report 24020313 (Version 1)
Quarter: 2024Q2

REPORT INFORMATION
  Report Type: Report from Study
  Country: GB (occurrence: GB)
  Receive Date: 20240627
  Receipt Date: 20240627
  Transmission Date: 20240716
  Serious: Yes (Hospitalization)
  Sender: FDA-Public Use
  Company Number: GB-002147023-NVSC2021GB172589

PATIENT
  Sex: Female

DRUGS (4)
  1. OMNITROPE [Suspect]
     Active Substance: SOMATROPIN
     Dosage: 0.1 MG
     Route: 065
  2. OMNITROPE [Suspect]
     Active Substance: SOMATROPIN
     Indication: Hypopituitarism
     Dosage: 0.2 MG, QD
     Route: 065
  3. OMNITROPE [Suspect]
     Active Substance: SOMATROPIN
     Dosage: 0.2 MG
     Route: 065
  4. OMNITROPE [Suspect]
     Active Substance: SOMATROPIN
     Dosage: 0.60 MG, QD
     Route: 058

REACTIONS (3)
  - Viral infection [Unknown]
  - Lack of injection site rotation [Unknown]
  - Headache [Recovered/Resolved]
